FAERS Safety Report 10522499 (Version 1)
Quarter: 2014Q4

REPORT INFORMATION
  Report Type: Spontaneous
  Country: FR (occurrence: FR)
  Receive Date: 20141016
  Receipt Date: 20141016
  Transmission Date: 20150528
  Serious: Yes (Death, Hospitalization)
  Sender: FDA-Public Use
  Company Number: FR-BRISTOL-MYERS SQUIBB COMPANY-21492657

PATIENT
  Age: 89 Year
  Sex: Female

DRUGS (8)
  1. FRESUBIN [Concomitant]
     Active Substance: AMINO ACIDS\DEXTROSE\ELECTROLYTES NOS\SOYBEAN OIL\VITAMINS
  2. COUMADIN [Suspect]
     Active Substance: WARFARIN SODIUM
     Route: 048
  3. COVERSYL [Concomitant]
     Active Substance: PERINDOPRIL
  4. FOLIC ACID. [Concomitant]
     Active Substance: FOLIC ACID
  5. LERCAN [Concomitant]
     Active Substance: LERCANIDIPINE
  6. DIGOXIN. [Concomitant]
     Active Substance: DIGOXIN
  7. LASILIX [Concomitant]
     Active Substance: FUROSEMIDE
  8. DIFFU-K [Concomitant]
     Active Substance: POTASSIUM CHLORIDE

REACTIONS (2)
  - Subdural haematoma [Fatal]
  - Intestinal ischaemia [Unknown]

NARRATIVE: CASE EVENT DATE: 201302
